FAERS Safety Report 5722524-7 (Version None)
Quarter: 2008Q2

REPORT INFORMATION
  Report Type: 
  Country: None (occurrence: None)
  Receive Date: 20080429
  Receipt Date: 20071008
  Transmission Date: 20081010
  Serious: No
  Sender: FDA-Public Use
  Company Number: US-ASTRAZENECA-2007UW23289

PATIENT
  Age: 34 Year
  Sex: Male
  Weight: 97.5 kg

DRUGS (1)
  1. NEXIUM [Suspect]
     Indication: GASTROOESOPHAGEAL REFLUX DISEASE
     Route: 048
     Dates: start: 20070924

REACTIONS (4)
  - ABDOMINAL PAIN [None]
  - ILL-DEFINED DISORDER [None]
  - POLLAKIURIA [None]
  - RENAL PAIN [None]
